FAERS Safety Report 8578218-6 (Version None)
Quarter: 2012Q3

REPORT INFORMATION
  Report Type: 
  Country: None (occurrence: None)
  Receive Date: 20120808
  Receipt Date: 20120803
  Transmission Date: 20120928
  Serious: No
  Sender: FDA-Public Use
  Company Number: US-PFIZER INC-2012153567

PATIENT
  Age: 30 Year
  Sex: Female
  Weight: 82.993 kg

DRUGS (2)
  1. CHANTIX [Suspect]
     Dosage: UNK
     Dates: start: 20120625
  2. CHANTIX [Suspect]
     Indication: SMOKING CESSATION THERAPY
     Dosage: 0.5 MG, DAILY
     Dates: start: 20120521, end: 20120619

REACTIONS (8)
  - HOSTILITY [None]
  - IRRITABILITY [None]
  - ANGER [None]
  - FATIGUE [None]
  - ABNORMAL BEHAVIOUR [None]
  - ASTHENOPIA [None]
  - IMPATIENCE [None]
  - SOMNOLENCE [None]
